FAERS Safety Report 17764229 (Version 1)
Quarter: 2020Q2

REPORT INFORMATION
  Report Type: Spontaneous
  Country: JP (occurrence: JP)
  Receive Date: 20200511
  Receipt Date: 20200511
  Transmission Date: 20200714
  Serious: Yes (Death, Hospitalization)
  Sender: FDA-Public Use
  Company Number: JP-TEVA-2020-JP-1233884

PATIENT
  Age: 48 Year
  Sex: Male

DRUGS (3)
  1. GEMCITABINE. [Suspect]
     Active Substance: GEMCITABINE
     Indication: GALLBLADDER CANCER METASTATIC
     Dosage: ADMINISTERED ON DAYS 1 AND 8 OF A 21-DAY CYCLE
     Route: 065
  2. CISPLATIN. [Concomitant]
     Active Substance: CISPLATIN
     Indication: GALLBLADDER CANCER METASTATIC
     Dosage: ADMINISTERED ON DAYS 1 AND 8 OF A 21-DAY CYCLE
     Route: 065
  3. TS-1 [Concomitant]
     Active Substance: GIMERACIL\OTERACIL\TEGAFUR
     Indication: GALLBLADDER CANCER METASTATIC
     Route: 065

REACTIONS (3)
  - Eosinophilia [Unknown]
  - Disseminated intravascular coagulation [Fatal]
  - Granulocyte-colony stimulating factor level increased [Unknown]
